FAERS Safety Report 8264878-6 (Version None)
Quarter: 2012Q2

REPORT INFORMATION
  Report Type: 
  Country: None (occurrence: None)
  Receive Date: 20120406
  Receipt Date: 20120326
  Transmission Date: 20120825
  Serious: Yes (Other)
  Sender: FDA-Public Use
  Company Number: US-ELI_LILLY_AND_COMPANY-US201203008069

PATIENT
  Sex: Male
  Weight: 83.9 kg

DRUGS (4)
  1. CYMBALTA [Suspect]
     Indication: DEPRESSION
     Dosage: UNK
     Dates: end: 20080301
  2. LEXAPRO [Concomitant]
     Indication: DEPRESSION
     Dosage: UNK
     Dates: end: 20080301
  3. WELLBUTRIN [Concomitant]
     Indication: DEPRESSION
     Dosage: UNK
     Dates: end: 20080301
  4. TRAMADOL HCL [Concomitant]
     Indication: PAIN
     Dosage: UNK
     Dates: end: 20080301

REACTIONS (4)
  - MUSCULOSKELETAL STIFFNESS [None]
  - PAIN [None]
  - DRUG INEFFECTIVE [None]
  - MUSCLE SPASTICITY [None]
